FAERS Safety Report 6873956-5 (Version None)
Quarter: 2010Q3

REPORT INFORMATION
  Report Type: 
  Country: None (occurrence: None)
  Receive Date: 20100723
  Receipt Date: 20090323
  Transmission Date: 20110219
  Serious: No
  Sender: FDA-Public Use
  Company Number: US-PFIZER INC-2009189183

PATIENT
  Sex: Female
  Weight: 80 kg

DRUGS (2)
  1. CHANTIX [Suspect]
     Dates: start: 20090301
  2. PROZAC [Concomitant]
     Indication: GASTROOESOPHAGEAL REFLUX DISEASE

REACTIONS (1)
  - ABDOMINAL PAIN UPPER [None]
